FAERS Safety Report 17439375 (Version 1)
Quarter: 2020Q1

REPORT INFORMATION
  Report Type: Spontaneous
  Country: US (occurrence: US)
  Receive Date: 20200219
  Receipt Date: 20200219
  Transmission Date: 20200409
  Serious: Yes (Other)
  Sender: FDA-Public Use
  Company Number: None

PATIENT
  Age: 76 Year
  Sex: Female
  Weight: 79.4 kg

DRUGS (9)
  1. LEVETIRACETAM 1500MG BID [Concomitant]
  2. POTASSIUM CHLORIDE 10MEQ MWF [Concomitant]
  3. TOPIRAMATE 100MG BID [Concomitant]
  4. AMIODARONE 100MG DAILY [Concomitant]
  5. MONTELUKAST 10MG DAILY [Concomitant]
  6. DIFLUCAN [Suspect]
     Active Substance: FLUCONAZOLE
     Indication: VULVOVAGINAL CANDIDIASIS
     Route: 048
     Dates: start: 20191208, end: 20191211
  7. LEVOTHYROXINE 75MCG DAILY [Concomitant]
  8. PHENYTOIN. [Suspect]
     Active Substance: PHENYTOIN
     Indication: SEIZURE
     Route: 048
  9. SPIRONOLACTONE 25MG BID [Concomitant]

REACTIONS (2)
  - Anticonvulsant drug level increased [None]
  - Drug interaction [None]

NARRATIVE: CASE EVENT DATE: 20191211
